FAERS Safety Report 24106267 (Version 1)
Quarter: 2024Q3

REPORT INFORMATION
  Report Type: Spontaneous
  Country: US (occurrence: US)
  Receive Date: 20240717
  Receipt Date: 20240717
  Transmission Date: 20241016
  Serious: No
  Sender: Phathom Pharmaceuticals
  Company Number: US-PHATHOM PHARMACEUTICALS INC.-2024PHT00205

PATIENT
  Age: 72 Year
  Sex: Female
  Weight: 63.503 kg

DRUGS (2)
  1. VOQUEZNA [Suspect]
     Active Substance: VONOPRAZAN FUMARATE
     Indication: Gastrooesophageal reflux disease
     Dosage: 20 MG
     Route: 048
     Dates: start: 20240404, end: 20240406
  2. VOQUEZNA [Suspect]
     Active Substance: VONOPRAZAN FUMARATE
     Dosage: 10 MG
     Route: 048
     Dates: start: 20240407

REACTIONS (3)
  - Therapeutic product effect decreased [Unknown]
  - Dizziness [Recovering/Resolving]
  - Wrong technique in product usage process [Unknown]

NARRATIVE: CASE EVENT DATE: 20240401
